FAERS Safety Report 9440779 (Version 1)
Quarter: 2013Q3

REPORT INFORMATION
  Report Type: Report from Study
  Country: US (occurrence: US)
  Receive Date: 20130805
  Receipt Date: 20130805
  Transmission Date: 20140515
  Serious: Yes (Other)
  Sender: FDA-Public Use
  Company Number: US-ABBOTT-13P-163-1125741-00

PATIENT
  Age: 41 Year
  Sex: Male
  Weight: 88.53 kg

DRUGS (2)
  1. NIASPAN (COATED) [Suspect]
     Indication: BLOOD CHOLESTEROL ABNORMAL
     Dosage: AT BEDTIME
  2. ASPIRIN [Concomitant]
     Indication: FLUSHING
     Dosage: 30 MINUTES PRIOR TO THE NIASPAN

REACTIONS (4)
  - Heart rate decreased [Unknown]
  - Flushing [Recovered/Resolved]
  - Erythema [Recovered/Resolved]
  - Pruritus [Recovered/Resolved]
